FAERS Safety Report 11632860 (Version 1)
Quarter: 2015Q4

REPORT INFORMATION
  Report Type: Spontaneous
  Country: US (occurrence: US)
  Receive Date: 20151015
  Receipt Date: 20151015
  Transmission Date: 20160304
  Serious: No
  Sender: FDA-Public Use
  Company Number: US-BAYER-2015-439290

PATIENT
  Age: 2 Year
  Sex: Female
  Weight: 8 kg

DRUGS (4)
  1. GENOTROPIN [Concomitant]
     Active Substance: SOMATROPIN
  2. KEPPRA [Concomitant]
     Active Substance: LEVETIRACETAM
  3. MIRALAX [Suspect]
     Active Substance: POLYETHYLENE GLYCOL 3350
     Indication: CONSTIPATION
     Dosage: 8.5 G, QD
     Dates: start: 201409
  4. MULTIVITAMINS WITH IRON [VIT C,B12,D2,B9,B3,B6,RETINOL,B2,B1 HCL,V [Concomitant]

REACTIONS (2)
  - Off label use [None]
  - Product use issue [None]
